FAERS Safety Report 16096847 (Version 1)
Quarter: 2019Q1

REPORT INFORMATION
  Report Type: Spontaneous
  Country: GB (occurrence: GB)
  Receive Date: 20190320
  Receipt Date: 20190320
  Transmission Date: 20190418
  Serious: Yes (Hospitalization)
  Sender: FDA-Public Use
  Company Number: GB-PERRIGO-19GB003365

PATIENT
  Age: 14 Year
  Sex: Male

DRUGS (4)
  1. PHENYTOIN. [Suspect]
     Active Substance: PHENYTOIN
     Indication: DRUG ABUSE
  2. PHENYTOIN. [Suspect]
     Active Substance: PHENYTOIN
     Indication: OVERDOSE
     Dosage: 200 MG, BID
     Route: 065
  3. PARACETAMOL [Suspect]
     Active Substance: ACETAMINOPHEN
     Indication: DRUG ABUSE
  4. PARACETAMOL [Suspect]
     Active Substance: ACETAMINOPHEN
     Indication: OVERDOSE
     Dosage: 45 MG, UNK
     Route: 065

REACTIONS (8)
  - Hepatic failure [Recovered/Resolved]
  - Abdominal pain upper [Not Recovered/Not Resolved]
  - Liver function test abnormal [Recovered/Resolved]
  - Encephalopathy [Recovered/Resolved]
  - Toxicity to various agents [Unknown]
  - Vomiting [Unknown]
  - Loss of consciousness [Recovered/Resolved]
  - Metabolic acidosis [Not Recovered/Not Resolved]
